FAERS Safety Report 5770467-5 (Version None)
Quarter: 2008Q2

REPORT INFORMATION
  Report Type: 
  Country: None (occurrence: None)
  Receive Date: 20080613
  Receipt Date: 20080505
  Transmission Date: 20081010
  Serious: No
  Sender: FDA-Public Use
  Company Number: US-ABBOTT-08P-163-0450308-00

PATIENT
  Sex: Female
  Weight: 72.64 kg

DRUGS (3)
  1. HUMIRA [Suspect]
     Indication: RHEUMATOID ARTHRITIS
     Route: 058
     Dates: start: 20080201, end: 20080501
  2. SERETIDE [Concomitant]
     Indication: ASTHMA
     Route: 055
  3. ZONISAMIDE [Concomitant]
     Indication: CONVULSION
     Route: 048

REACTIONS (2)
  - COUGH [None]
  - NASOPHARYNGITIS [None]
